FAERS Safety Report 7996091-1 (Version None)
Quarter: 2011Q4

REPORT INFORMATION
  Report Type: 
  Country: None (occurrence: None)
  Receive Date: 20111220
  Receipt Date: 20111212
  Transmission Date: 20120403
  Serious: Yes (Hospitalization)
  Sender: FDA-Public Use
  Company Number: PHEH2011US008614

PATIENT
  Sex: Female

DRUGS (1)
  1. NEORAL [Suspect]
     Indication: RENAL AND PANCREAS TRANSPLANT
     Dosage: 75 MG, BID
     Route: 048
     Dates: start: 20110711

REACTIONS (7)
  - DEHYDRATION [None]
  - URINARY BLADDER RUPTURE [None]
  - RENAL FAILURE ACUTE [None]
  - FLATULENCE [None]
  - RENAL IMPAIRMENT [None]
  - DIARRHOEA [None]
  - ABDOMINAL DISCOMFORT [None]
